FAERS Safety Report 18691555 (Version 5)
Quarter: 2021Q4

REPORT INFORMATION
  Report Type: Report from Study
  Country: CO (occurrence: CO)
  Receive Date: 20210101
  Receipt Date: 20211228
  Transmission Date: 20220303
  Serious: Yes (Other)
  Sender: FDA-Public Use
  Company Number: NVSC2020CO343420

PATIENT
  Age: 81 Year
  Sex: Female
  Weight: 42 kg

DRUGS (5)
  1. MEKINIST [Suspect]
     Active Substance: TRAMETINIB DIMETHYL SULFOXIDE
     Indication: Metastatic malignant melanoma
     Dosage: 2 MG, QD (STARTED A YEAR AGO)
     Route: 048
  2. MEKINIST [Suspect]
     Active Substance: TRAMETINIB DIMETHYL SULFOXIDE
     Indication: BRAF gene mutation
  3. TAFINLAR [Suspect]
     Active Substance: DABRAFENIB MESYLATE
     Indication: Metastatic malignant melanoma
     Dosage: 150 MG, Q12H (TABLET) (STARTED A YEAR AGO)
     Route: 048
  4. TAFINLAR [Suspect]
     Active Substance: DABRAFENIB MESYLATE
     Indication: BRAF gene mutation
  5. METOCLOPRAMIDE [Concomitant]
     Active Substance: METOCLOPRAMIDE
     Indication: Nausea
     Dosage: 10 MG, Q8H (STARTED A YEAR AGO)
     Route: 048

REACTIONS (8)
  - Gastritis [Recovered/Resolved]
  - Inflammation [Unknown]
  - Skin discolouration [Unknown]
  - Scratch [Unknown]
  - Frostbite [Unknown]
  - Dermatitis allergic [Unknown]
  - Mouth haemorrhage [Unknown]
  - Stomatitis [Unknown]

NARRATIVE: CASE EVENT DATE: 20201101
